FAERS Safety Report 10809787 (Version 1)
Quarter: 2015Q1

REPORT INFORMATION
  Report Type: Report from Study
  Country: US (occurrence: US)
  Receive Date: 20150217
  Receipt Date: 20150217
  Transmission Date: 20150721
  Serious: No
  Sender: FDA-Public Use
  Company Number: US-ABBVIE-14K-163-1269264-00

PATIENT
  Age: 61 Year
  Sex: Male

DRUGS (5)
  1. HUMIRA [Suspect]
     Active Substance: ADALIMUMAB
     Dates: start: 20140507, end: 20140507
  2. ADVIL [Concomitant]
     Active Substance: IBUPROFEN
     Indication: GASTROINTESTINAL PAIN
  3. HUMIRA [Suspect]
     Active Substance: ADALIMUMAB
     Indication: CROHN^S DISEASE
     Dates: start: 20140423, end: 20140423
  4. HUMIRA [Suspect]
     Active Substance: ADALIMUMAB
     Dates: start: 20140521
  5. ADVIL [Concomitant]
     Active Substance: IBUPROFEN
     Indication: ABSCESS INTESTINAL
     Dosage: TWO, FOUR, FIVE OR SIX

REACTIONS (1)
  - Drug ineffective [Not Recovered/Not Resolved]

NARRATIVE: CASE EVENT DATE: 20140423
